FAERS Safety Report 16736356 (Version 1)
Quarter: 2019Q3

REPORT INFORMATION
  Report Type: Spontaneous
  Country: US (occurrence: US)
  Receive Date: 20190823
  Receipt Date: 20190823
  Transmission Date: 20191005
  Serious: No
  Sender: FDA-Public Use
  Company Number: US-SA-2019SA234205

PATIENT
  Age: 72 Year
  Sex: Female

DRUGS (23)
  1. ZETIA [Concomitant]
     Active Substance: EZETIMIBE
  2. ONDANSETRON [Concomitant]
     Active Substance: ONDANSETRON
  3. MECLIZINE [Concomitant]
     Active Substance: MECLIZINE HYDROCHLORIDE
  4. SYMBICORT [Concomitant]
     Active Substance: BUDESONIDE\FORMOTEROL FUMARATE DIHYDRATE
  5. EXFORGE HCT [Concomitant]
     Active Substance: AMLODIPINE BESYLATE\HYDROCHLOROTHIAZIDE\VALSARTAN
  6. FUROSEMIDE. [Concomitant]
     Active Substance: FUROSEMIDE
  7. MONTELUKAST SODIUM. [Concomitant]
     Active Substance: MONTELUKAST SODIUM
  8. CEFDINIR. [Concomitant]
     Active Substance: CEFDINIR
  9. DUPIXENT [Suspect]
     Active Substance: DUPILUMAB
     Indication: ASTHMA
     Dosage: 300 MG, QOW
     Route: 058
     Dates: start: 2019
  10. COREG [Concomitant]
     Active Substance: CARVEDILOL
  11. CARVEDILOL. [Concomitant]
     Active Substance: CARVEDILOL
  12. TRAZODONE [Concomitant]
     Active Substance: TRAZODONE HYDROCHLORIDE
  13. ALLEGRA ALLERGY [Concomitant]
     Active Substance: FEXOFENADINE HYDROCHLORIDE
  14. DIPHENHYDRAMINE. [Concomitant]
     Active Substance: DIPHENHYDRAMINE
  15. CEPHALEXINE [Concomitant]
     Active Substance: CEPHALEXIN
  16. LORAZEPAM. [Concomitant]
     Active Substance: LORAZEPAM
  17. FLONASE ALLERGY RELIEF [Concomitant]
     Active Substance: FLUTICASONE PROPIONATE
  18. OXYCODONE HYDROCHLORIDE. [Concomitant]
     Active Substance: OXYCODONE HYDROCHLORIDE
  19. AMBIEN [Concomitant]
     Active Substance: ZOLPIDEM TARTRATE
  20. METFORMIN HCL [Concomitant]
     Active Substance: METFORMIN HYDROCHLORIDE
  21. NEXIUM I.V. [Concomitant]
     Active Substance: ESOMEPRAZOLE SODIUM
  22. SPIRIVA [Concomitant]
     Active Substance: TIOTROPIUM BROMIDE MONOHYDRATE
  23. METHYLPREDNISOLONE. [Concomitant]
     Active Substance: METHYLPREDNISOLONE

REACTIONS (2)
  - Surgery [Unknown]
  - Dizziness [Unknown]

NARRATIVE: CASE EVENT DATE: 2019
